FAERS Safety Report 6833844-7 (Version None)
Quarter: 2010Q3

REPORT INFORMATION
  Report Type: 
  Country: None (occurrence: None)
  Receive Date: 20100712
  Receipt Date: 20070402
  Transmission Date: 20110219
  Serious: No
  Sender: FDA-Public Use
  Company Number: US-PFIZER INC-2007028045

PATIENT
  Sex: Female
  Weight: 52.16 kg

DRUGS (6)
  1. CHANTIX [Suspect]
     Dates: start: 20070301
  2. SYNTHROID [Concomitant]
  3. DIURIL [Concomitant]
  4. LODINE [Concomitant]
     Indication: ARTHRITIS
  5. ESTRATEST [Concomitant]
  6. VITAMINS [Concomitant]

REACTIONS (3)
  - ABDOMINAL DISTENSION [None]
  - BEDRIDDEN [None]
  - NAUSEA [None]
